FAERS Safety Report 9735160 (Version 1)
Quarter: 2013Q4

REPORT INFORMATION
  Report Type: Spontaneous
  Country: CA (occurrence: CA)
  Receive Date: 20131206
  Receipt Date: 20131206
  Transmission Date: 20140711
  Serious: Yes (Hospitalization)
  Sender: FDA-Public Use
  Company Number: CA-009507513-1312CAN002261

PATIENT
  Age: 62 Year
  Sex: Male

DRUGS (2)
  1. PEGETRON [Suspect]
     Indication: HEPATITIS C
     Dosage: REDIPEN
     Route: 065
     Dates: start: 201308, end: 201309
  2. VICTRELIS [Suspect]
     Indication: HEPATITIS C
     Dosage: UNK
     Route: 048
     Dates: start: 201308, end: 201309

REACTIONS (2)
  - Haemoglobin decreased [Unknown]
  - Transfusion [Unknown]
